FAERS Safety Report 20065332 (Version 6)
Quarter: 2022Q2

REPORT INFORMATION
  Report Type: Report from Study
  Country: US (occurrence: US)
  Receive Date: 20211113
  Receipt Date: 20220411
  Transmission Date: 20220721
  Serious: No
  Sender: FDA-Public Use
  Company Number: US-NOVARTISTESTPH-NVSC2021US259616

PATIENT
  Sex: Female

DRUGS (1)
  1. COSENTYX [Suspect]
     Active Substance: SECUKINUMAB
     Indication: Psoriasis
     Dosage: 300 MG, EVERY WEEK X 5 WEEKS THEN EVERY 4 WEEKS
     Route: 058
     Dates: start: 20211015

REACTIONS (12)
  - Burning sensation [Unknown]
  - Asthenia [Unknown]
  - Joint stiffness [Unknown]
  - Skin irritation [Unknown]
  - Psoriasis [Unknown]
  - Skin exfoliation [Unknown]
  - Rash [Unknown]
  - Arthralgia [Unknown]
  - Erythema [Unknown]
  - Pruritus [Unknown]
  - Inappropriate schedule of product administration [Unknown]
  - Drug ineffective [Unknown]
